FAERS Safety Report 9332092 (Version 3)
Quarter: 2013Q3

REPORT INFORMATION
  Report Type: Report from Study
  Country: US (occurrence: US)
  Receive Date: 20130605
  Receipt Date: 20130724
  Transmission Date: 20140515
  Serious: Yes (Hospitalization)
  Sender: FDA-Public Use
  Company Number: US-BRISTOL-MYERS SQUIBB COMPANY-18977611

PATIENT
  Age: 45 Year
  Sex: Female

DRUGS (1)
  1. ARIPIPRAZOLE IM DEPOT [Suspect]
     Indication: BIPOLAR I DISORDER
     Dosage: 29DEC12-05MAR2013:67DYS?06MAR-25APR2013:ORAL:400MG QM:51DYS?INJ
     Route: 065
     Dates: start: 20121229, end: 20130425

REACTIONS (1)
  - Mania [Recovered/Resolved]
